FAERS Safety Report 8988201 (Version 1)
Quarter: 2012Q4

REPORT INFORMATION
  Report Type: Report from Study
  Country: ID (occurrence: ID)
  Receive Date: 20121227
  Receipt Date: 20121227
  Transmission Date: 20130627
  Serious: Yes (Death, Hospitalization)
  Sender: FDA-Public Use
  Company Number: ID-ASTELLAS-2012US012700

PATIENT
  Age: 69 Year
  Sex: Female

DRUGS (1)
  1. ERLOTINIB TABLET [Suspect]
     Indication: NON-SMALL CELL LUNG CANCER
     Dosage: 150 mg, UID/QD
     Route: 048
     Dates: start: 20121009, end: 2012

REACTIONS (4)
  - Death [Fatal]
  - Lung neoplasm malignant [Unknown]
  - Dyspnoea [Unknown]
  - Malaise [Unknown]
